FAERS Safety Report 17647595 (Version 1)
Quarter: 2020Q2

REPORT INFORMATION
  Report Type: Spontaneous
  Country: IT (occurrence: IT)
  Receive Date: 20200409
  Receipt Date: 20200409
  Transmission Date: 20200713
  Serious: Yes (Hospitalization, Other)
  Sender: FDA-Public Use
  Company Number: IT-TEVA-2020-IT-1218852

PATIENT
  Sex: Female

DRUGS (4)
  1. PACLITAXEL. [Concomitant]
     Active Substance: PACLITAXEL
     Indication: SIGNET-RING CELL CARCINOMA
     Route: 065
     Dates: start: 2018, end: 201809
  2. CISPLATIN. [Suspect]
     Active Substance: CISPLATIN
     Indication: SIGNET-RING CELL CARCINOMA
     Dosage: WITH 75% DOSAGE
     Route: 065
  3. 5-FLUOROURACIL [Suspect]
     Active Substance: FLUOROURACIL
     Indication: SIGNET-RING CELL CARCINOMA
     Route: 065
  4. CYRAMZA [Suspect]
     Active Substance: RAMUCIRUMAB
     Indication: SIGNET-RING CELL CARCINOMA
     Route: 065
     Dates: start: 2018, end: 2018

REACTIONS (6)
  - Loss of consciousness [Unknown]
  - Gastrointestinal toxicity [Unknown]
  - Aortic dissection [Unknown]
  - Vomiting [Unknown]
  - Hypotension [Unknown]
  - Anuria [Unknown]
